FAERS Safety Report 4890582-8 (Version None)
Quarter: 2006Q1

REPORT INFORMATION
  Report Type: 
  Country: None (occurrence: None)
  Receive Date: 20060123
  Receipt Date: 20060112
  Transmission Date: 20060701
  Serious: Yes (Death)
  Sender: FDA-Public Use
  Company Number: 163-20785-05120424

PATIENT
  Age: 73 Year
  Sex: Male

DRUGS (4)
  1. THALOMID [Suspect]
     Indication: MULTIPLE MYELOMA
     Dosage: SEE IMAGE, ORAL
     Route: 048
     Dates: start: 20040901, end: 20040907
  2. THALOMID [Suspect]
     Indication: MULTIPLE MYELOMA
     Dosage: SEE IMAGE, ORAL
     Route: 048
     Dates: start: 20040908, end: 20050101
  3. THALOMID [Suspect]
     Indication: MULTIPLE MYELOMA
     Dosage: SEE IMAGE, ORAL
     Route: 048
     Dates: start: 20050101, end: 20050201
  4. THALOMID [Suspect]

REACTIONS (2)
  - LOWER GASTROINTESTINAL HAEMORRHAGE [None]
  - RENAL FAILURE CHRONIC [None]
